FAERS Safety Report 6017471-X (Version None)
Quarter: 2008Q4

REPORT INFORMATION
  Report Type: 
  Country: None (occurrence: None)
  Receive Date: 20081219
  Receipt Date: 20081209
  Transmission Date: 20090506
  Serious: Yes (Other)
  Sender: FDA-Public Use
  Company Number: B0550642A

PATIENT
  Age: 35 Year
  Sex: Female

DRUGS (3)
  1. SEREVENT [Suspect]
     Dosage: 50 MG / TWICE PER DAY / INHALED
     Route: 055
  2. FLUTICASONE PROPIONATE (FORMULATION UNKNOWN) [Suspect]
     Dosage: 220 MG / TWICE PER DAY / INHALED
     Route: 055
  3. RANITIDINE HYDROCHLORIDE [Concomitant]

REACTIONS (19)
  - ANOREXIA [None]
  - ATYPICAL MYCOBACTERIAL INFECTION [None]
  - BIOPSY VOCAL CORD ABNORMAL [None]
  - CHEST X-RAY ABNORMAL [None]
  - COUGH [None]
  - CULTURE POSITIVE [None]
  - DIARRHOEA [None]
  - DYSPHONIA [None]
  - DYSPNOEA EXERTIONAL [None]
  - HEADACHE [None]
  - HYPERAEMIA [None]
  - LARYNGEAL OEDEMA [None]
  - LYMPHADENOPATHY [None]
  - MALAISE [None]
  - NODULE [None]
  - RHINOSCLEROMA [None]
  - SPEECH DISORDER [None]
  - VOCAL CORD DISORDER [None]
  - WEIGHT DECREASED [None]
